FAERS Safety Report 20020297 (Version 1)
Quarter: 2021Q4

REPORT INFORMATION
  Report Type: Spontaneous
  Country: IS (occurrence: IS)
  Receive Date: 20211101
  Receipt Date: 20211101
  Transmission Date: 20220303
  Serious: Yes (Life-Threatening, Hospitalization, Other)
  Sender: FDA-Public Use
  Company Number: IS-MYLANLABS-2021M1042092

PATIENT
  Age: 58 Year
  Sex: Male

DRUGS (8)
  1. ZOPICLONE [Suspect]
     Active Substance: ZOPICLONE
     Indication: Product used for unknown indication
     Dosage: UNK, UNKNOWN
  2. OLANZAPINE [Suspect]
     Active Substance: OLANZAPINE
     Indication: Bipolar I disorder
     Dosage: UNK, UNKNOWN
  3. CHLORPROTHIXENE [Suspect]
     Active Substance: CHLORPROTHIXENE
     Indication: Bipolar I disorder
     Dosage: UNK, UNKNOWN
  4. LITHIUM [Suspect]
     Active Substance: LITHIUM
     Indication: Bipolar I disorder
     Dosage: UNK, UNKNOWN
  5. CHLORPROTHIXENUM [Concomitant]
     Dosage: UNK
  6. OLANZAPINUM [Concomitant]
     Dosage: UNK
  7. PROPRANOLOL HYDROCHLORIDE [Concomitant]
     Active Substance: PROPRANOLOL HYDROCHLORIDE
     Indication: Tremor
     Dosage: UNK,
  8. ZOPICLONE [Concomitant]
     Active Substance: ZOPICLONE
     Indication: Sleep disorder
     Dosage: UNK, UNKNOWN

REACTIONS (9)
  - Neuroleptic malignant syndrome [Recovered/Resolved]
  - Toxicity to various agents [Unknown]
  - Dehydration [Unknown]
  - Acute kidney injury [Unknown]
  - Delirium [Unknown]
  - Pyrexia [Unknown]
  - Nephrogenic diabetes insipidus [Unknown]
  - Extrapyramidal disorder [Recovered/Resolved]
  - Urine output increased [Unknown]
